FAERS Safety Report 23998167 (Version 1)
Quarter: 2024Q2

REPORT INFORMATION
  Report Type: Spontaneous
  Country: US (occurrence: US)
  Receive Date: 20240621
  Receipt Date: 20240621
  Transmission Date: 20240715
  Serious: No
  Sender: FDA-Public Use
  Company Number: US-GILEAD-2024-0677716

PATIENT
  Age: 59 Year
  Sex: Male

DRUGS (1)
  1. EPCLUSA [Suspect]
     Active Substance: SOFOSBUVIR\VELPATASVIR
     Indication: Chronic hepatitis C
     Dosage: 400-100MG|TAKE 1 TABLET BY MOUTH ONCE DAILY.
     Route: 048

REACTIONS (4)
  - Extra dose administered [Unknown]
  - Pain in extremity [Unknown]
  - Arthralgia [Unknown]
  - Nausea [Unknown]

NARRATIVE: CASE EVENT DATE: 20240301
